FAERS Safety Report 6542127-4 (Version None)
Quarter: 2010Q1

REPORT INFORMATION
  Report Type: 
  Country: None (occurrence: None)
  Receive Date: 20100119
  Receipt Date: 20100107
  Transmission Date: 20100710
  Serious: Yes (Other)
  Sender: FDA-Public Use
  Company Number: US-JNJCH-2010000780

PATIENT
  Age: 65 Year
  Weight: 86.2 kg

DRUGS (7)
  1. BENGAY ULTRA STRENGTH PATCH [Suspect]
     Indication: SKIN DISORDER
     Dosage: TEXT:ONE PATCH ONCE
     Route: 061
     Dates: start: 20091231, end: 20100101
  2. BENGAY [Suspect]
     Indication: SKIN DISORDER
     Dosage: TEXT:UNSPECIFIED
     Route: 061
  3. ALL OTHER NON-THERAPEUTIC PRODUCTS [Suspect]
     Indication: SKIN DISORDER
     Dosage: TEXT:UNSPECIFIED
     Route: 061
     Dates: start: 20091231, end: 20091231
  4. NORVASC [Concomitant]
     Indication: BLOOD PRESSURE
     Dosage: TEXT:2.5
     Route: 065
  5. BENICAR [Concomitant]
     Indication: BLOOD PRESSURE
     Route: 048
  6. SPIRONOLACTONE [Concomitant]
     Indication: BLOOD PRESSURE
     Route: 048
  7. ACTO PLUS 850MG [Concomitant]
     Indication: TYPE 2 DIABETES MELLITUS
     Route: 048

REACTIONS (3)
  - CAUSTIC INJURY [None]
  - EXPIRED DRUG ADMINISTERED [None]
  - WRONG TECHNIQUE IN DRUG USAGE PROCESS [None]
